FAERS Safety Report 14220509 (Version 1)
Quarter: 2017Q4

REPORT INFORMATION
  Report Type: Report from Study
  Country: CA (occurrence: CA)
  Receive Date: 20171124
  Receipt Date: 20171124
  Transmission Date: 20180321
  Serious: Yes (Hospitalization, Other)
  Sender: FDA-Public Use
  Company Number: CA-ALEXION PHARMACEUTICALS INC.-A201713098

PATIENT
  Age: 32 Year
  Sex: Female
  Weight: 40 kg

DRUGS (2)
  1. INSULIN [Concomitant]
     Active Substance: INSULIN NOS
     Indication: PRODUCT USED FOR UNKNOWN INDICATION
     Route: 065
  2. SOLIRIS [Suspect]
     Active Substance: ECULIZUMAB
     Indication: ATYPICAL HAEMOLYTIC URAEMIC SYNDROME
     Dosage: 900 MG, QW
     Route: 042
     Dates: start: 20171027, end: 20171110

REACTIONS (6)
  - Blood glucose abnormal [Unknown]
  - Renal necrosis [Not Recovered/Not Resolved]
  - Kidney transplant rejection [Unknown]
  - Enterococcal infection [Unknown]
  - Pancreatic disorder [Not Recovered/Not Resolved]
  - Renal vein thrombosis [Not Recovered/Not Resolved]

NARRATIVE: CASE EVENT DATE: 2017
